FAERS Safety Report 16060477 (Version 1)
Quarter: 2019Q1

REPORT INFORMATION
  Report Type: Other
  Country: US (occurrence: US)
  Receive Date: 20190312
  Receipt Date: 20190312
  Transmission Date: 20190418
  Serious: Yes (Other)
  Sender: FDA-Public Use
  Company Number: US-DEXPHARM-20190180

PATIENT
  Age: 74 Year
  Sex: Male

DRUGS (7)
  1. NIVOLUMAB [Suspect]
     Active Substance: NIVOLUMAB
     Indication: CHRONIC MYELOID LEUKAEMIA
  2. NIVOLUMAB [Suspect]
     Active Substance: NIVOLUMAB
     Indication: RENAL CELL CARCINOMA
  3. AXITINIB [Suspect]
     Active Substance: AXITINIB
     Indication: RENAL CELL CARCINOMA
  4. IMATINIB. [Suspect]
     Active Substance: IMATINIB MESYLATE
     Indication: CHRONIC MYELOID LEUKAEMIA
  5. OMEPRAZOLE. [Suspect]
     Active Substance: OMEPRAZOLE
  6. IMATINIB. [Suspect]
     Active Substance: IMATINIB MESYLATE
     Indication: RENAL CELL CARCINOMA
  7. AXITINIB [Suspect]
     Active Substance: AXITINIB
     Indication: CHRONIC MYELOID LEUKAEMIA

REACTIONS (1)
  - Tubulointerstitial nephritis [Recovering/Resolving]
